FAERS Safety Report 11506407 (Version 1)
Quarter: 2015Q3

REPORT INFORMATION
  Report Type: Spontaneous
  Country: US (occurrence: US)
  Receive Date: 20150915
  Receipt Date: 20150915
  Transmission Date: 20151125
  Serious: No
  Sender: FDA-Public Use
  Company Number: US-ROCHE-791179

PATIENT
  Sex: Female

DRUGS (2)
  1. RIBAVIRIN. [Suspect]
     Active Substance: RIBAVIRIN
     Indication: CHRONIC HEPATITIS C
     Dosage: DOSE: 800 MG PER DAY DIVIDED DOSE
     Route: 048
  2. PEGASYS [Suspect]
     Active Substance: PEGINTERFERON ALFA-2A
     Indication: CHRONIC HEPATITIS C
     Route: 058

REACTIONS (8)
  - Haemoglobin decreased [Unknown]
  - Decreased appetite [Unknown]
  - Flatulence [Unknown]
  - White blood cell count decreased [Unknown]
  - Headache [Unknown]
  - Eructation [Unknown]
  - Chills [Unknown]
  - Fatigue [Unknown]
